FAERS Safety Report 4647227-1 (Version None)
Quarter: 2005Q2

REPORT INFORMATION
  Report Type: 
  Country: None (occurrence: None)
  Receive Date: 20050426
  Receipt Date: 20050426
  Transmission Date: 20051028
  Serious: Yes (Hospitalization)
  Sender: FDA-Public Use
  Company Number: None

PATIENT
  Age: 61 Year
  Sex: Female
  Weight: 77 kg

DRUGS (8)
  1. IRINOTECAN [Suspect]
     Indication: COLORECTAL CANCER
     Dosage: 290 MG OTHER
     Dates: start: 20040824, end: 20050301
  2. LEUCOVCORIN (FOLINIC ACID) [Suspect]
     Indication: COLORECTAL CANCER
     Dosage: 385 MG OTHER
     Dates: start: 20040824, end: 20050302
  3. FLUOROURACIL [Suspect]
     Indication: COLORECTAL CANCER
     Dosage: 1540 MG OTHER
     Dates: start: 20040824, end: 20050302
  4. DEXAMETHASONE [Concomitant]
  5. TEMAZEPAM [Concomitant]
  6. ESOMEPRAZOLE MAGNESIUM [Concomitant]
  7. OXAZEPAM [Concomitant]
  8. WARFARIN SODIUM [Concomitant]

REACTIONS (4)
  - CATHETER RELATED COMPLICATION [None]
  - JUGULAR VEIN THROMBOSIS [None]
  - PYREXIA [None]
  - VENOUS THROMBOSIS LIMB [None]
